FAERS Safety Report 17412061 (Version 2)
Quarter: 2020Q1

REPORT INFORMATION
  Report Type: Spontaneous
  Country: HR (occurrence: HR)
  Receive Date: 20200213
  Receipt Date: 20200306
  Transmission Date: 20200409
  Serious: Yes (Hospitalization)
  Sender: FDA-Public Use
  Company Number: HR-TEVA-2020-HR-1183333

PATIENT
  Age: 10 Year
  Sex: Male
  Weight: 42 kg

DRUGS (1)
  1. KLAVOCIN [Suspect]
     Active Substance: AMOXICILLIN\CLAVULANIC ACID
     Indication: VIRAL SINUSITIS
     Dosage: 22.4 ML DAILY;
     Route: 048
     Dates: start: 20200125, end: 20200130

REACTIONS (3)
  - Contusion [Recovered/Resolved]
  - Oedema peripheral [Recovered/Resolved]
  - Rash pruritic [Recovered/Resolved]
